FAERS Safety Report 12926768 (Version 7)
Quarter: 2017Q4

REPORT INFORMATION
  Report Type: Spontaneous
  Country: US (occurrence: US)
  Receive Date: 20161108
  Receipt Date: 20171108
  Transmission Date: 20180320
  Serious: No
  Sender: FDA-Public Use
  Company Number: US-BIOMARINAP-US-2016-111703

PATIENT
  Age: 17 Year
  Sex: Male

DRUGS (7)
  1. ALDURAZYME [Suspect]
     Active Substance: LARONIDASE
     Dosage: 31.9 MG, QW
     Route: 041
     Dates: end: 20170914
  2. BENADRYL [Concomitant]
     Active Substance: DIPHENHYDRAMINE HYDROCHLORIDE
     Indication: PREMEDICATION
  3. CLARITIN [Concomitant]
     Active Substance: LORATADINE
     Indication: PRODUCT USED FOR UNKNOWN INDICATION
  4. ZYRTEC [Concomitant]
     Active Substance: CETIRIZINE HYDROCHLORIDE
     Indication: PREMEDICATION
  5. PREDNISONE. [Suspect]
     Active Substance: PREDNISONE
     Indication: PREMEDICATION
     Route: 065
  6. ALDURAZYME [Suspect]
     Active Substance: LARONIDASE
     Dosage: UNK
     Route: 041
     Dates: start: 20170920
  7. ALDURAZYME [Suspect]
     Active Substance: LARONIDASE
     Indication: MUCOPOLYSACCHARIDOSIS I
     Dosage: 29 MG, QW
     Route: 041
     Dates: start: 20030721

REACTIONS (8)
  - Lip swelling [Unknown]
  - Musculoskeletal disorder [Unknown]
  - Acne [Unknown]
  - Chest discomfort [Unknown]
  - Hypersensitivity [Unknown]
  - Urticaria [Unknown]
  - Increased appetite [Unknown]
  - Infusion related reaction [Unknown]

NARRATIVE: CASE EVENT DATE: 20161007
